FAERS Safety Report 25929569 (Version 2)
Quarter: 2025Q4

REPORT INFORMATION
  Report Type: Report from Study
  Country: EU (occurrence: EU)
  Receive Date: 20251016
  Receipt Date: 20251028
  Transmission Date: 20260118
  Serious: Yes (Other)
  Sender: AUROBINDO
  Company Number: EU-MYLANLABS-2025M1083311

PATIENT
  Age: 28 Year
  Sex: Female

DRUGS (9)
  1. FOLIC ACID [Suspect]
     Active Substance: FOLIC ACID
     Indication: Vitamin supplementation
     Dosage: UNK
     Route: 065
  2. ENOXAPARIN [Suspect]
     Active Substance: ENOXAPARIN
     Indication: Thrombosis prophylaxis
     Dosage: UNK
     Route: 065
  3. PREGABALIN [Suspect]
     Active Substance: PREGABALIN
     Indication: Neuralgia
     Dosage: UNK
     Route: 065
  4. PREGABALIN [Suspect]
     Active Substance: PREGABALIN
     Indication: Sciatica
  5. ALPELISIB [Suspect]
     Active Substance: ALPELISIB
     Indication: PIK3CA related overgrowth spectrum
     Dosage: 250 MILLIGRAM, ONCE A DAY
     Route: 048
  6. ALPELISIB [Suspect]
     Active Substance: ALPELISIB
     Dosage: 125 MILLIGRAM, ONCE A DAY
     Route: 048
  7. ALPELISIB [Suspect]
     Active Substance: ALPELISIB
     Dosage: 175 MILLIGRAM, ONCE A DAY
     Route: 048
  8. HUMAN RHO(D) IMMUNE GLOBULIN [Suspect]
     Active Substance: HUMAN RHO(D) IMMUNE GLOBULIN
     Indication: Rhesus incompatibility
     Dosage: UNK
     Route: 065
  9. SIROLIMUS [Concomitant]
     Active Substance: SIROLIMUS
     Indication: Neuralgia
     Dosage: UNK
     Route: 065

REACTIONS (12)
  - Rebound effect [Recovering/Resolving]
  - Condition aggravated [Recovering/Resolving]
  - PIK3CA related overgrowth spectrum [Recovering/Resolving]
  - Drug ineffective [Unknown]
  - Vulvovaginal dryness [Recovered/Resolved]
  - Dry skin [Recovered/Resolved]
  - Exposure during pregnancy [Unknown]
  - Gait disturbance [Unknown]
  - Skin weeping [Unknown]
  - Inflammation [Unknown]
  - Pain [Unknown]
  - Delivery [Unknown]
